FAERS Safety Report 7337067 (Version 5)
Quarter: 2017Q2

REPORT INFORMATION
  Report Type: Report from Study
  Country: DE (occurrence: DE)
  Receive Date: 20100330
  Receipt Date: 20170601
  Transmission Date: 20170830
  Serious: Yes (Death, Life-Threatening, Hospitalization)
  Sender: FDA-Public Use
  Company Number: PHHO2010DE04839

PATIENT
  Age: 25 Year
  Sex: Male
  Weight: 90 kg

DRUGS (4)
  1. NO TREATMENT RECEIVED [Suspect]
     Active Substance: UNSPECIFIED INGREDIENT
     Indication: LIVER TRANSPLANT
     Dosage: NO TREATMENT
     Route: 065
  2. SIMULECT [Suspect]
     Active Substance: BASILIXIMAB
     Indication: LIVER TRANSPLANT
     Dosage: 20 MG, QD
     Route: 042
     Dates: start: 20080524
  3. CYCLOSPORIN [Suspect]
     Active Substance: CYCLOSPORINE
     Indication: LIVER TRANSPLANT
     Dosage: UNK
     Route: 048
  4. TACROLIMUS. [Concomitant]
     Active Substance: TACROLIMUS
     Indication: LIVER TRANSPLANT
     Dosage: 4 MG, UNK
     Route: 065
     Dates: start: 20080524

REACTIONS (13)
  - Enterobacter sepsis [Fatal]
  - Acute kidney injury [Fatal]
  - Staphylococcal sepsis [Fatal]
  - Enterococcal sepsis [Fatal]
  - Shock [Fatal]
  - Pneumonia [Fatal]
  - Respiratory failure [Fatal]
  - Graft loss [Unknown]
  - Vascular graft complication [Unknown]
  - Enterococcal infection [Fatal]
  - Ascites [Recovered/Resolved]
  - Vena cava thrombosis [Recovered/Resolved]
  - Graft haemorrhage [Unknown]

NARRATIVE: CASE EVENT DATE: 20080524
